FAERS Safety Report 4488723-X (Version None)
Quarter: 2004Q4

REPORT INFORMATION
  Report Type: 
  Country: None (occurrence: None)
  Receive Date: 20041025
  Receipt Date: 20041012
  Transmission Date: 20050328
  Serious: Yes (Hospitalization)
  Sender: FDA-Public Use
  Company Number: 2004077381

PATIENT
  Age: 45 Year
  Sex: Male

DRUGS (1)
  1. AMLODIPINE [Suspect]
     Indication: HYPERTENSION
     Dosage: 2.5 MG, ORAL
     Route: 047
     Dates: start: 20030901

REACTIONS (2)
  - MALAISE [None]
  - RED BLOOD CELL COUNT DECREASED [None]
